FAERS Safety Report 9721736 (Version 1)
Quarter: 2013Q4

REPORT INFORMATION
  Report Type: Report from Study
  Country: US (occurrence: US)
  Receive Date: 20131201
  Receipt Date: 20131201
  Transmission Date: 20140711
  Serious: No
  Sender: FDA-Public Use
  Company Number: US-ABBVIE-13P-163-1164436-00

PATIENT
  Age: 53 Year
  Sex: Male

DRUGS (8)
  1. ANDROGEL [Suspect]
     Indication: TESTICULAR FAILURE
     Route: 061
     Dates: start: 201306, end: 20131003
  2. ANDROGEL [Suspect]
     Indication: FATIGUE
  3. ANDROGEL [Suspect]
     Indication: ALOPECIA
  4. ANDROGEL [Suspect]
     Indication: TESTICULAR FAILURE
     Route: 061
     Dates: start: 2006, end: 2007
  5. ANDROGEL [Suspect]
     Indication: FATIGUE
  6. ANDROGEL [Suspect]
     Indication: ALOPECIA
  7. LIPITOR [Concomitant]
     Indication: PRODUCT USED FOR UNKNOWN INDICATION
  8. NIASPAN [Concomitant]
     Indication: PRODUCT USED FOR UNKNOWN INDICATION

REACTIONS (3)
  - Apathy [Not Recovered/Not Resolved]
  - Pneumonia [Recovered/Resolved]
  - Drug dose omission [Not Recovered/Not Resolved]
